FAERS Safety Report 8478775-4 (Version None)
Quarter: 2012Q2

REPORT INFORMATION
  Report Type: 
  Country: None (occurrence: None)
  Receive Date: 20120629
  Receipt Date: 20120626
  Transmission Date: 20120825
  Serious: Yes (Other)
  Sender: FDA-Public Use
  Company Number: PT-ROCHE-1073880

PATIENT
  Sex: Female

DRUGS (2)
  1. MABTHERA [Suspect]
     Indication: SYSTEMIC LUPUS ERYTHEMATOSUS
     Route: 042
     Dates: start: 20120101
  2. METHOTREXATE [Concomitant]
     Indication: SYSTEMIC LUPUS ERYTHEMATOSUS
     Route: 058
     Dates: start: 20100101, end: 20120601

REACTIONS (1)
  - UTERINE CARCINOMA IN SITU [None]
